FAERS Safety Report 12469107 (Version 1)
Quarter: 2016Q2

REPORT INFORMATION
  Report Type: Spontaneous
  Country: JP (occurrence: JP)
  Receive Date: 20160615
  Receipt Date: 20160615
  Transmission Date: 20160815
  Serious: Yes (Hospitalization)
  Sender: FDA-Public Use
  Company Number: JP-JNJFOC-20160407180

PATIENT
  Age: 62 Year
  Sex: Female
  Weight: 44 kg

DRUGS (7)
  1. CELECOX [Concomitant]
     Active Substance: CELECOXIB
     Indication: PRODUCT USED FOR UNKNOWN INDICATION
     Route: 065
     Dates: start: 20160219, end: 20160307
  2. TRAMAL OD [Suspect]
     Active Substance: TRAMADOL
     Indication: INTERVERTEBRAL DISC PROTRUSION
     Route: 048
     Dates: start: 20160228, end: 20160302
  3. LYRICA [Concomitant]
     Active Substance: PREGABALIN
     Indication: PRODUCT USED FOR UNKNOWN INDICATION
     Route: 065
     Dates: start: 20160219
  4. TRYPTANOL [Concomitant]
     Active Substance: AMITRIPTYLINE
     Indication: PRODUCT USED FOR UNKNOWN INDICATION
     Route: 065
     Dates: start: 20160305, end: 20160307
  5. BROTIZOLAM [Suspect]
     Active Substance: BROTIZOLAM
     Indication: INTERVERTEBRAL DISC PROTRUSION
     Route: 048
     Dates: start: 20160302, end: 20160307
  6. TRAMAL OD [Suspect]
     Active Substance: TRAMADOL
     Indication: INTERVERTEBRAL DISC PROTRUSION
     Route: 048
     Dates: start: 20160303, end: 20160305
  7. TRAMAL OD [Suspect]
     Active Substance: TRAMADOL
     Indication: INTERVERTEBRAL DISC PROTRUSION
     Route: 048
     Dates: start: 20160222, end: 20160227

REACTIONS (1)
  - Erythema multiforme [Recovered/Resolved]

NARRATIVE: CASE EVENT DATE: 20160304
